FAERS Safety Report 5738066-9 (Version None)
Quarter: 2008Q2

REPORT INFORMATION
  Report Type: 
  Country: None (occurrence: None)
  Receive Date: 20080509
  Receipt Date: 20080429
  Transmission Date: 20081010
  Serious: Yes (Other)
  Sender: FDA-Public Use
  Company Number: 19255

PATIENT
  Age: 65 Year
  Sex: Female
  Weight: 77 kg

DRUGS (6)
  1. CITALOXAN [Suspect]
     Indication: MYELOID LEUKAEMIA
     Dosage: 175 MG, IV
     Route: 042
     Dates: start: 20080321
  2. RAMIPRIL [Concomitant]
  3. ONDANSETRON [Concomitant]
  4. BROMAZEPAM [Concomitant]
  5. ALLOPURINOL [Concomitant]
  6. PANTOPRAZOLE SODIUM [Concomitant]

REACTIONS (1)
  - TOXIC SKIN ERUPTION [None]
